FAERS Safety Report 4875254-8 (Version None)
Quarter: 2006Q1

REPORT INFORMATION
  Report Type: 
  Country: None (occurrence: None)
  Receive Date: 20060109
  Receipt Date: 20050810
  Transmission Date: 20060701
  Serious: Yes (Hospitalization)
  Sender: FDA-Public Use
  Company Number: US-MERCK-0508USA01966

PATIENT
  Age: 75 Year
  Sex: Female
  Weight: 80 kg

DRUGS (13)
  1. VIOXX [Suspect]
     Indication: RHEUMATOID ARTHRITIS
     Route: 048
     Dates: start: 20000107, end: 20030101
  2. VIOXX [Suspect]
     Indication: OSTEOARTHRITIS
     Route: 048
     Dates: start: 20000107, end: 20030101
  3. LIPITOR [Concomitant]
     Route: 065
  4. COUMADIN [Concomitant]
     Route: 065
  5. COUMADIN [Concomitant]
     Route: 065
  6. METOPROLOL [Concomitant]
     Route: 065
  7. TYLENOL [Concomitant]
     Route: 065
  8. DIGITEK [Concomitant]
     Route: 065
  9. NORVASC [Concomitant]
     Route: 065
  10. FUROSEMIDE [Concomitant]
     Route: 065
  11. ZOLOFT [Concomitant]
     Route: 065
  12. LISINOPRIL [Concomitant]
     Route: 065
  13. PREDNISONE [Concomitant]
     Route: 065

REACTIONS (12)
  - ATRIAL FIBRILLATION [None]
  - BUNDLE BRANCH BLOCK LEFT [None]
  - BURSA DISORDER [None]
  - CARDIAC FAILURE CONGESTIVE [None]
  - CORONARY ARTERY DISEASE [None]
  - DEHYDRATION [None]
  - DYSLIPIDAEMIA [None]
  - HYPERTENSION [None]
  - ISCHAEMIC CARDIOMYOPATHY [None]
  - MUSCLE SPASMS [None]
  - RENAL FAILURE CHRONIC [None]
  - SPINAL COLUMN STENOSIS [None]
